FAERS Safety Report 21298617 (Version 1)
Quarter: 2022Q3

REPORT INFORMATION
  Report Type: Spontaneous
  Country: US (occurrence: None)
  Receive Date: 20220904
  Receipt Date: 20220904
  Transmission Date: 20221027
  Serious: Yes (Hospitalization)
  Sender: FDA-Public Use
  Company Number: None

PATIENT
  Sex: Male

DRUGS (5)
  1. GLATIRAMER [Suspect]
     Active Substance: GLATIRAMER
     Indication: Multiple sclerosis
     Dosage: FREQUENCY : AS DIRECTED;?
     Route: 058
     Dates: start: 20200514
  2. GLATIRAMER [Suspect]
     Active Substance: GLATIRAMER
     Dosage: OTHER QUANTITY : 1 SYRINGE;?FREQUENCY : AS DIRECTED;?
     Route: 058
  3. KEPPRA [Concomitant]
     Active Substance: LEVETIRACETAM
  4. VITAMIN B12 [Concomitant]
  5. VITAMIN D [Concomitant]
     Active Substance: VITAMIN D NOS

REACTIONS (2)
  - Fall [None]
  - Product dose omission issue [None]
